FAERS Safety Report 12931459 (Version 2)
Quarter: 2018Q1

REPORT INFORMATION
  Report Type: Spontaneous
  Country: PT (occurrence: PT)
  Receive Date: 20161110
  Receipt Date: 20180321
  Transmission Date: 20180508
  Serious: Yes (Other)
  Sender: FDA-Public Use
  Company Number: PT-JNJFOC-20161101857

PATIENT

DRUGS (2)
  1. INFLIXIMAB, RECOMBINANT [Suspect]
     Active Substance: INFLIXIMAB
     Indication: CROHN^S DISEASE
     Dosage: 5 MG/KG AND 10 MG/KG
     Route: 042
  2. INFLIXIMAB, RECOMBINANT [Suspect]
     Active Substance: INFLIXIMAB
     Indication: COLITIS ULCERATIVE
     Dosage: 5 MG/KG AND 10 MG/KG
     Route: 042

REACTIONS (29)
  - Actinic keratosis [Unknown]
  - Acarodermatitis [Unknown]
  - Staphylococcal infection [Unknown]
  - Lupus-like syndrome [Unknown]
  - Psoriasis [Unknown]
  - Erythema multiforme [Unknown]
  - Folliculitis [Unknown]
  - Furuncle [Unknown]
  - Abscess [Unknown]
  - Off label use [Unknown]
  - Candida infection [Unknown]
  - Herpes simplex [Unknown]
  - Infusion related reaction [Unknown]
  - Skin cancer [Unknown]
  - Impetigo [Unknown]
  - Tinea infection [Unknown]
  - Lice infestation [Unknown]
  - Lichen planus [Unknown]
  - Alopecia areata [Unknown]
  - Granuloma skin [Unknown]
  - Injection site reaction [Unknown]
  - Vasculitis [Unknown]
  - Herpes zoster [Unknown]
  - Product use issue [Unknown]
  - Eczema [Unknown]
  - Molluscum contagiosum [Unknown]
  - Erysipelas [Unknown]
  - Cytomegalovirus infection [Unknown]
  - Seborrhoeic dermatitis [Unknown]
